FAERS Safety Report 5241327-3 (Version None)
Quarter: 2007Q1

REPORT INFORMATION
  Report Type: 
  Country: None (occurrence: None)
  Receive Date: 20070220
  Receipt Date: 20070215
  Transmission Date: 20070707
  Serious: Yes (Death, Hospitalization)
  Sender: FDA-Public Use
  Company Number: AT-BAYER-200710987GDS

PATIENT
  Age: 34 Year
  Sex: Female

DRUGS (2)
  1. ASPIRIN [Suspect]
     Indication: EAR PAIN
     Route: 048
  2. ALPRAZOLAM [Concomitant]
     Indication: ANXIETY
     Route: 065

REACTIONS (7)
  - BRAIN DAMAGE [None]
  - BRAIN OEDEMA [None]
  - CARDIAC ARREST [None]
  - DRUG TOXICITY [None]
  - METABOLIC ACIDOSIS [None]
  - PULMONARY OEDEMA [None]
  - RESPIRATORY FAILURE [None]
